FAERS Safety Report 16207174 (Version 1)
Quarter: 2019Q2

REPORT INFORMATION
  Report Type: Spontaneous
  Country: US (occurrence: US)
  Receive Date: 20190417
  Receipt Date: 20190417
  Transmission Date: 20190711
  Serious: Yes (Other)
  Sender: FDA-Public Use
  Company Number: US-TORRENT-00007981

PATIENT
  Age: 65 Year
  Sex: Female
  Weight: 68 kg

DRUGS (3)
  1. BABY ASPIRIN [Concomitant]
     Active Substance: ASPIRIN
     Indication: MYOCARDIAL INFARCTION
     Dosage: UNKNOWN
  2. ATENOLOL. [Concomitant]
     Active Substance: ATENOLOL
     Indication: MYOCARDIAL INFARCTION
     Dosage: UNKNOWN
  3. LOSARTAN. [Suspect]
     Active Substance: LOSARTAN
     Indication: HYPERTENSION
     Dosage: UNKNOWN
     Dates: end: 201901

REACTIONS (2)
  - Chronic kidney disease [Not Recovered/Not Resolved]
  - Renal cancer [Recovered/Resolved]

NARRATIVE: CASE EVENT DATE: 201211
